FAERS Safety Report 4504022-1 (Version None)
Quarter: 2004Q4

REPORT INFORMATION
  Report Type: 
  Country: None (occurrence: None)
  Receive Date: 20041115
  Receipt Date: 20041102
  Transmission Date: 20050328
  Serious: Yes (Other)
  Sender: FDA-Public Use
  Company Number: CHPA2004US03891

PATIENT
  Age: 48 Year
  Sex: Female
  Weight: 65.8 kg

DRUGS (1)
  1. EX-LAX MAX STR LAX PILLS SENNA (NCH) (SENNA GLYCOSIDES (CA SALTS OF PU [Suspect]
     Dosage: 6 PILLS, QD, ORAL
     Route: 048
     Dates: start: 20041030, end: 20041031

REACTIONS (4)
  - CONTUSION [None]
  - DIZZINESS [None]
  - LOSS OF CONSCIOUSNESS [None]
  - MOUTH INJURY [None]
